FAERS Safety Report 25090575 (Version 1)
Quarter: 2025Q1

REPORT INFORMATION
  Report Type: Spontaneous
  Country: US (occurrence: None)
  Receive Date: 20250318
  Receipt Date: 20250318
  Transmission Date: 20250409
  Serious: No
  Sender: FDA-CTU
  Company Number: None

PATIENT
  Age: 39 Year
  Sex: Male

DRUGS (8)
  1. CABENUVA [Suspect]
     Active Substance: CABOTEGRAVIR\RILPIVIRINE
     Indication: HIV infection
     Route: 030
     Dates: start: 20221201, end: 20250317
  2. AMLODIPINE [Concomitant]
     Active Substance: AMLODIPINE BESYLATE
     Dates: start: 20220926
  3. ATENOLOL [Concomitant]
     Active Substance: ATENOLOL
     Dates: start: 20221121
  4. clonidine 0.3mg patch [Concomitant]
     Dates: start: 20240804
  5. FUROSEMIDE [Concomitant]
     Active Substance: FUROSEMIDE
     Dates: start: 20240804
  6. HYDRALAZINE [Concomitant]
     Active Substance: HYDRALAZINE HYDROCHLORIDE
     Dates: start: 20231006
  7. losartan/hctz 100/25mg [Concomitant]
     Dates: start: 20231006
  8. vitamin d2 50,000 unit [Concomitant]
     Dates: start: 20231127

REACTIONS (1)
  - Hepatitis C RNA increased [None]

NARRATIVE: CASE EVENT DATE: 20250317
